FAERS Safety Report 9032638 (Version 1)
Quarter: 2013Q1

REPORT INFORMATION
  Report Type: Spontaneous
  Country: US (occurrence: US)
  Receive Date: 20130125
  Receipt Date: 20130125
  Transmission Date: 20140127
  Serious: Yes (Hospitalization)
  Sender: FDA-Public Use
  Company Number: US-ASTRAZENECA-2013SE03813

PATIENT
  Sex: Male
  Weight: 104.3 kg

DRUGS (4)
  1. BRILINTA [Suspect]
     Indication: MYOCARDIAL INFARCTION
     Route: 048
     Dates: start: 201208
  2. CARDEDILOL [Concomitant]
     Indication: HYPERTENSION
     Route: 048
  3. ASPIRIN [Concomitant]
     Indication: MYOCARDIAL INFARCTION
     Route: 048
  4. ATROVASTATIN [Concomitant]
     Route: 042

REACTIONS (2)
  - Back pain [Not Recovered/Not Resolved]
  - Intentional drug misuse [Unknown]
